FAERS Safety Report 17579712 (Version 1)
Quarter: 2020Q1

REPORT INFORMATION
  Report Type: Spontaneous
  Country: US (occurrence: US)
  Receive Date: 20200325
  Receipt Date: 20200325
  Transmission Date: 20200409
  Serious: Yes (Hospitalization, Other)
  Sender: FDA-Public Use
  Company Number: US-REGENERON PHARMACEUTICALS, INC.-2020-25436

PATIENT

DRUGS (4)
  1. LEVOTHYROXINE. [Concomitant]
     Active Substance: LEVOTHYROXINE
     Indication: PRODUCT USED FOR UNKNOWN INDICATION
     Dosage: UNK
  2. AVASTIN [Suspect]
     Active Substance: BEVACIZUMAB
     Dosage: RIGHT EYE
     Route: 031
     Dates: start: 20200225, end: 20200225
  3. EYLEA [Suspect]
     Active Substance: AFLIBERCEPT
     Indication: MACULAR DEGENERATION
     Dosage: UNK, LEFT EYE
     Route: 031
     Dates: start: 20200225
  4. AVASTIN [Suspect]
     Active Substance: BEVACIZUMAB
     Indication: MACULAR DEGENERATION
     Dosage: BOTH EYES
     Route: 031
     Dates: start: 2018

REACTIONS (5)
  - Blood glucose abnormal [Recovered/Resolved]
  - Swelling of eyelid [Recovered/Resolved]
  - Dizziness [Recovered/Resolved]
  - Hypothyroidism [Recovered/Resolved]
  - Eye pain [Recovered/Resolved]

NARRATIVE: CASE EVENT DATE: 20200226
